FAERS Safety Report 11360001 (Version 2)
Quarter: 2015Q3

REPORT INFORMATION
  Report Type: Report from Study
  Country: US (occurrence: US)
  Receive Date: 20150810
  Receipt Date: 20150811
  Transmission Date: 20151125
  Serious: Yes (Other)
  Sender: FDA-Public Use
  Company Number: US-ROCHE-1616039

PATIENT
  Sex: Female

DRUGS (14)
  1. CLONAZEPAM. [Suspect]
     Active Substance: CLONAZEPAM
     Indication: PRODUCT USED FOR UNKNOWN INDICATION
     Route: 048
  2. LOSARTAN. [Concomitant]
     Active Substance: LOSARTAN
     Route: 065
  3. CLONIDINE HCL [Concomitant]
     Active Substance: CLONIDINE HYDROCHLORIDE
     Route: 065
  4. FLEXERIL [Concomitant]
     Active Substance: CYCLOBENZAPRINE HYDROCHLORIDE
     Route: 065
  5. NAPROXEN. [Suspect]
     Active Substance: NAPROXEN
     Indication: PRODUCT USED FOR UNKNOWN INDICATION
     Route: 048
  6. ZYRTEC [Concomitant]
     Active Substance: CETIRIZINE HYDROCHLORIDE
     Route: 065
  7. PROTONIX (UNITED STATES) [Concomitant]
     Route: 065
  8. BIAXIN [Concomitant]
     Active Substance: CLARITHROMYCIN
     Route: 065
  9. IMITREX [Concomitant]
     Active Substance: SUMATRIPTAN\SUMATRIPTAN SUCCINATE
     Route: 065
  10. NORCO [Concomitant]
     Active Substance: ACETAMINOPHEN\HYDROCODONE BITARTRATE
  11. HYDROCHLOROTHIAZIDE. [Concomitant]
     Active Substance: HYDROCHLOROTHIAZIDE
     Route: 065
  12. NASONEX [Concomitant]
     Active Substance: MOMETASONE FUROATE
  13. PROAIR HFA [Concomitant]
     Active Substance: ALBUTEROL SULFATE
  14. LUNESTA [Concomitant]
     Active Substance: ESZOPICLONE
     Route: 065

REACTIONS (23)
  - Tinnitus [Unknown]
  - Dyspepsia [Unknown]
  - Hyperhidrosis [Unknown]
  - Eye pain [Unknown]
  - Palpitations [Unknown]
  - Constipation [Unknown]
  - Osteoporosis [Unknown]
  - Cough [Unknown]
  - Loss of consciousness [Unknown]
  - Pyrexia [Unknown]
  - Chest pain [Unknown]
  - Temperature intolerance [Unknown]
  - Rash generalised [Unknown]
  - Headache [Unknown]
  - Fatigue [Unknown]
  - Seizure [Unknown]
  - Dry mouth [Unknown]
  - Dyspnoea [Unknown]
  - Dysphonia [Unknown]
  - Arthralgia [Unknown]
  - Musculoskeletal stiffness [Unknown]
  - Back disorder [Unknown]
  - Amnesia [Unknown]
